FAERS Safety Report 9278727 (Version 1)
Quarter: 2013Q2

REPORT INFORMATION
  Report Type: Spontaneous
  Country: AU (occurrence: None)
  Receive Date: 20130501
  Receipt Date: 20130501
  Transmission Date: 20140414
  Serious: Yes (Hospitalization)
  Sender: FDA-Public Use
  Company Number: 2012-004562

PATIENT
  Age: 55 Year
  Sex: Female

DRUGS (1)
  1. ERYTHROMYCIN [Suspect]
     Route: 048
     Dates: start: 20120904, end: 20120910

REACTIONS (5)
  - Pancreatitis [None]
  - Blood lactate dehydrogenase increased [None]
  - Aspartate aminotransferase increased [None]
  - Alanine aminotransferase increased [None]
  - Gamma-glutamyltransferase increased [None]
